FAERS Safety Report 9964859 (Version 1)
Quarter: 2014Q1

REPORT INFORMATION
  Report Type: Spontaneous
  Country: US (occurrence: US)
  Receive Date: 20140305
  Receipt Date: 20140305
  Transmission Date: 20141002
  Serious: No
  Sender: FDA-Public Use
  Company Number: US-AMGEN-USASP2014006729

PATIENT
  Age: 54 Year
  Sex: Female

DRUGS (14)
  1. ENBREL [Suspect]
     Indication: RHEUMATOID ARTHRITIS
     Dosage: 50 MG, QWK
     Route: 058
     Dates: start: 2007
  2. PREDNISONE [Concomitant]
     Dosage: 1 MG, UNK
  3. METHOTREXATE [Concomitant]
     Dosage: UNK
     Dates: start: 2012
  4. PROCARDIA                          /00340701/ [Concomitant]
     Dosage: 10 MG, UNK
  5. ASPIRIN [Concomitant]
     Dosage: 81 MG, UNK
  6. FOLIC ACID [Concomitant]
     Dosage: 1 MG, UNK
  7. TOPROL [Concomitant]
     Dosage: 50 MG, UNK
  8. PREVACID [Concomitant]
     Dosage: 30 MG, UNK
  9. WARFARIN [Concomitant]
     Dosage: 1 MG, UNK
  10. VITAMIN C                          /00008001/ [Concomitant]
     Dosage: 500 MG, UNK
  11. FISH OIL [Concomitant]
     Dosage: UNK
  12. CALCIUM [Concomitant]
     Dosage: UNK
  13. VITAMIN B6 [Concomitant]
     Dosage: 100 MG, UNK
  14. VYTORIN [Concomitant]
     Dosage: 10 - 40 MG

REACTIONS (2)
  - Thrombosis [Unknown]
  - Gastroenteritis viral [Unknown]
